FAERS Safety Report 13933044 (Version 1)
Quarter: 2017Q3

REPORT INFORMATION
  Report Type: Spontaneous
  Country: US (occurrence: US)
  Receive Date: 20170904
  Receipt Date: 20170904
  Transmission Date: 20171127
  Serious: Yes (Other)
  Sender: FDA-Public Use
  Company Number: US-AMGEN-USASP2017116520

PATIENT
  Age: 64 Year
  Sex: Male
  Weight: 100.68 kg

DRUGS (4)
  1. PROCRIT [Suspect]
     Active Substance: ERYTHROPOIETIN
     Indication: PRODUCT USED FOR UNKNOWN INDICATION
     Dosage: UNK
     Route: 065
  2. PACLITAXEL. [Concomitant]
     Active Substance: PACLITAXEL
     Indication: OROPHARYNGEAL CANCER STAGE IV
     Dosage: 112 MG, Q3WK
     Dates: start: 20170308
  3. CISPLATIN. [Concomitant]
     Active Substance: CISPLATIN
     Indication: OROPHARYNGEAL CANCER STAGE IV
     Dosage: 112 MG, Q3WK
     Dates: start: 20170308
  4. NEULASTA [Suspect]
     Active Substance: PEGFILGRASTIM
     Indication: PROPHYLAXIS
     Dosage: 6 MG, AFTER CHEMO (24 HOURS AFTER CHEMO ADMINISTRATION)
     Route: 058

REACTIONS (2)
  - Unintentional medical device removal [Unknown]
  - Hyperhidrosis [Recovered/Resolved]

NARRATIVE: CASE EVENT DATE: 20170728
